FAERS Safety Report 5294371-4 (Version None)
Quarter: 2007Q2

REPORT INFORMATION
  Report Type: 
  Country: None (occurrence: None)
  Receive Date: 20070412
  Receipt Date: 20070328
  Transmission Date: 20071010
  Serious: Yes (Other)
  Sender: FDA-Public Use
  Company Number: IE-JNJFOC-20070306897

PATIENT
  Sex: Male

DRUGS (6)
  1. REMICADE [Suspect]
     Indication: PSORIATIC ARTHROPATHY
     Route: 042
  2. ALLOPURINOL [Concomitant]
  3. LOSEC [Concomitant]
  4. DIFENE [Concomitant]
  5. TRAMADOL HCL [Concomitant]
  6. CALCICHEW D3 [Concomitant]

REACTIONS (4)
  - CHEST PAIN [None]
  - CHILLS [None]
  - FLUSHING [None]
  - PRURITUS [None]
